FAERS Safety Report 8891724 (Version 1)
Quarter: 2012Q4

REPORT INFORMATION
  Report Type: 
  Country: US (occurrence: US)
  Receive Date: 20121107
  Receipt Date: 20121107
  Transmission Date: 20130627
  Serious: No
  Sender: FDA-Public Use
  Company Number: US-AMGEN-USASP2011058538

PATIENT
  Age: 65 Year
  Sex: Female

DRUGS (1)
  1. ENBREL [Suspect]
     Indication: RHEUMATOID ARTHRITIS
     Dosage: UNK
     Dates: start: 20061107, end: 20111024

REACTIONS (5)
  - Rheumatoid arthritis [Not Recovered/Not Resolved]
  - Feeling abnormal [Unknown]
  - Head injury [Not Recovered/Not Resolved]
  - Swelling face [Not Recovered/Not Resolved]
  - Pain [Not Recovered/Not Resolved]
